FAERS Safety Report 7548049-4 (Version None)
Quarter: 2011Q2

REPORT INFORMATION
  Report Type: 
  Country: None (occurrence: None)
  Receive Date: 20110608
  Receipt Date: 20110523
  Transmission Date: 20111010
  Serious: Yes (Other)
  Sender: FDA-Public Use
  Company Number: AUR-APL-2011-01802

PATIENT
  Age: 50 Year
  Sex: Male
  Weight: 88 kg

DRUGS (3)
  1. CITALOPRAM HYDROBROMIDE [Suspect]
     Dosage: 20MG- ORAL
     Route: 048
     Dates: start: 20101105, end: 20101117
  2. SIMVASTATIN [Suspect]
     Indication: TYPE IIA HYPERLIPIDAEMIA
     Dosage: 80   -ORAL
     Route: 048
     Dates: start: 20080122
  3. CITALOPRAM HYDROBROMIDE [Suspect]
     Dosage: 30MG- ORAL
     Route: 048
     Dates: start: 20101118, end: 20101209

REACTIONS (2)
  - MYOPATHY [None]
  - DRUG INTERACTION [None]
